FAERS Safety Report 13046395 (Version 8)
Quarter: 2019Q3

REPORT INFORMATION
  Report Type: Report from Study
  Country: CR (occurrence: CR)
  Receive Date: 20161220
  Receipt Date: 20190819
  Transmission Date: 20191004
  Serious: Yes (Life-Threatening, Other)
  Sender: FDA-Public Use
  Company Number: PHHY2016CR174223

PATIENT
  Sex: Male
  Weight: 75 kg

DRUGS (6)
  1. TEGRETOL [Suspect]
     Active Substance: CARBAMAZEPINE
     Dosage: 20 DF (200 MG), UNK
     Route: 065
  2. FLUOXETINE [Concomitant]
     Active Substance: FLUOXETINE HYDROCHLORIDE
     Indication: DEPRESSION
     Dosage: UNK, BID
     Route: 048
  3. GILENYA [Suspect]
     Active Substance: FINGOLIMOD HYDROCHLORIDE
     Indication: MULTIPLE SCLEROSIS
     Dosage: 0.5 MG, QD
     Route: 048
  4. TEGRETOL [Suspect]
     Active Substance: CARBAMAZEPINE
     Indication: PRODUCT USED FOR UNKNOWN INDICATION
     Dosage: UNK UNK, BID
     Route: 048
  5. TEGRETOL [Suspect]
     Active Substance: CARBAMAZEPINE
     Dosage: UNK
     Route: 065
  6. TEGRETOL [Suspect]
     Active Substance: CARBAMAZEPINE
     Dosage: UNK
     Route: 065

REACTIONS (23)
  - Multiple sclerosis relapse [Unknown]
  - Muscular weakness [Unknown]
  - Stress [Recovering/Resolving]
  - Nasopharyngitis [Unknown]
  - Suicide attempt [Unknown]
  - Mobility decreased [Unknown]
  - Vomiting [Unknown]
  - Feeling hot [Unknown]
  - Discomfort [Unknown]
  - Depressed mood [Unknown]
  - Toxicity to various agents [Unknown]
  - Skin discolouration [Unknown]
  - Weight increased [Unknown]
  - Depression suicidal [Unknown]
  - Accident [Unknown]
  - Malaise [Not Recovered/Not Resolved]
  - Nausea [Recovered/Resolved]
  - Fall [Unknown]
  - Headache [Unknown]
  - Pain [Unknown]
  - Depression [Recovering/Resolving]
  - Pruritus [Unknown]
  - White blood cell count decreased [Unknown]
